FAERS Safety Report 9423887 (Version 3)
Quarter: 2013Q3

REPORT INFORMATION
  Report Type: Spontaneous
  Country: ES (occurrence: ES)
  Receive Date: 20130729
  Receipt Date: 20130913
  Transmission Date: 20140515
  Serious: Yes (Hospitalization)
  Sender: FDA-Public Use
  Company Number: ES-BIOGENIDEC-2013BI061264

PATIENT
  Age: 48 Year
  Sex: Female

DRUGS (2)
  1. TYSABRI [Suspect]
     Indication: MULTIPLE SCLEROSIS
     Route: 042
     Dates: start: 201002, end: 201303
  2. FINGOLIMOD [Concomitant]
     Dates: start: 201305

REACTIONS (1)
  - Multiple sclerosis relapse [Unknown]
